FAERS Safety Report 6231831-3 (Version None)
Quarter: 2009Q2

REPORT INFORMATION
  Report Type: 
  Country: None (occurrence: None)
  Receive Date: 20090611
  Receipt Date: 20090611
  Transmission Date: 20091009
  Serious: No
  Sender: FDA-Public Use
  Company Number: None

PATIENT
  Age: 55 Year
  Sex: Male
  Weight: 122.4712 kg

DRUGS (1)
  1. XTREME TRIM [Suspect]
     Indication: WEIGHT CONTROL
     Dosage: CAPSULE WEEKLY PO
     Route: 048
     Dates: start: 20090415, end: 20090510

REACTIONS (3)
  - ALANINE AMINOTRANSFERASE INCREASED [None]
  - ASPARTATE AMINOTRANSFERASE INCREASED [None]
  - BLOOD BILIRUBIN INCREASED [None]
